FAERS Safety Report 5621780-3 (Version None)
Quarter: 2008Q1

REPORT INFORMATION
  Report Type: 
  Country: None (occurrence: None)
  Receive Date: 20080114
  Receipt Date: 20070524
  Transmission Date: 20080703
  Serious: Yes (Other)
  Sender: FDA-Public Use
  Company Number: A03200703321

PATIENT
  Age: 75 Year
  Sex: Male

DRUGS (13)
  1. PLAVIX [Suspect]
     Indication: PERIPHERAL ARTERIAL OCCLUSIVE DISEASE
     Dosage: ORAL
     Route: 048
     Dates: start: 20060501
  2. PLAVIX [Suspect]
     Indication: STENT PLACEMENT
     Dosage: ORAL
     Route: 048
     Dates: start: 20060501
  3. ACETYLSALICYLIC ACID - TABLET - 325 MG [Suspect]
     Indication: PERIPHERAL ARTERIAL OCCLUSIVE DISEASE
     Dosage: 325 MG QD - ORAL
     Route: 048
     Dates: end: 20060101
  4. ACETYLSALICYLIC ACID - TABLET - 325 MG [Suspect]
     Indication: STENT PLACEMENT
     Dosage: 325 MG QD - ORAL
     Route: 048
     Dates: end: 20060101
  5. ASPIRIN [Suspect]
     Indication: PERIPHERAL ARTERIAL OCCLUSIVE DISEASE
     Dosage: 81 MG QD - ORAL
     Route: 048
     Dates: start: 20060101
  6. ASPIRIN [Suspect]
     Indication: STENT PLACEMENT
     Dosage: 81 MG QD - ORAL
     Route: 048
     Dates: start: 20060101
  7. ALCOHOL - TABLET [Suspect]
     Dosage: ORAL
     Route: 048
  8. ATORVASTATIN CALCIUM [Concomitant]
  9. QUINAPRIL HCL [Concomitant]
  10. ATENOLOL [Concomitant]
  11. HYDROCHLOROTHIAZIDE [Concomitant]
  12. VITAMIN CAP [Concomitant]
  13. FISH OIL [Concomitant]

REACTIONS (3)
  - FATIGUE [None]
  - HAEMATOCHEZIA [None]
  - HAEMORRHAGE [None]
